FAERS Safety Report 4423718-3 (Version None)
Quarter: 2004Q3

REPORT INFORMATION
  Report Type: 
  Country: None (occurrence: None)
  Receive Date: 20040811
  Receipt Date: 20040804
  Transmission Date: 20050211
  Serious: Yes (Hospitalization)
  Sender: FDA-Public Use
  Company Number: NO-MERCK-0408NOR00003

PATIENT
  Age: 79 Year
  Sex: Female

DRUGS (3)
  1. FOSAMAX [Suspect]
     Route: 048
  2. AZATHIOPRINE [Suspect]
     Indication: AUTOIMMUNE HEPATITIS
     Route: 048
  3. PREDNISOLONE [Suspect]
     Route: 048

REACTIONS (5)
  - ABDOMINAL DISCOMFORT [None]
  - ANAEMIA [None]
  - GASTROINTESTINAL HAEMORRHAGE [None]
  - HAEMATEMESIS [None]
  - NAUSEA [None]
